FAERS Safety Report 4283556-1 (Version None)
Quarter: 2004Q1

REPORT INFORMATION
  Report Type: 
  Country: None (occurrence: None)
  Receive Date: 20040121
  Receipt Date: 20031027
  Transmission Date: 20041129
  Serious: Yes (Hospitalization)
  Sender: FDA-Public Use
  Company Number: A03200302549

PATIENT
  Age: 72 Year
  Sex: Female
  Weight: 77.5651 kg

DRUGS (4)
  1. PLAVIX [Suspect]
     Indication: CHEST PAIN
     Dosage: 75 MG QD - ORAL
     Dates: start: 20010301, end: 20030801
  2. PLAVIX [Suspect]
     Indication: STENT PLACEMENT
     Dosage: 75 MG QD - ORAL
     Dates: start: 20010301, end: 20030801
  3. ACETYLSALICYLIC ACID SRT [Concomitant]
  4. PIOGLITAZONE HCL [Concomitant]

REACTIONS (1)
  - HAEMATOCHEZIA [None]
